FAERS Safety Report 10739800 (Version 3)
Quarter: 2015Q2

REPORT INFORMATION
  Report Type: Report from Study
  Country: DE (occurrence: DE)
  Receive Date: 20150127
  Receipt Date: 20150612
  Transmission Date: 20150821
  Serious: Yes (Hospitalization)
  Sender: FDA-Public Use
  Company Number: DE-AMGEN-DEUNI2015005620

PATIENT
  Age: 59 Year
  Sex: Male

DRUGS (8)
  1. KERLONE [Concomitant]
     Active Substance: BETAXOLOL HYDROCHLORIDE
     Dosage: 20 MG, QD
  2. BENALAPRIL [Concomitant]
     Dosage: 20 MG, UNK
  3. ENALAPRIL [Concomitant]
     Active Substance: ENALAPRIL
     Dosage: 10 MG,
  4. ASPIRIN. [Concomitant]
     Active Substance: ASPIRIN
     Dosage: 100 UNK, QD
  5. ROMIPLOSTIM [Suspect]
     Active Substance: ROMIPLOSTIM
     Indication: IMMUNE THROMBOCYTOPENIC PURPURA
     Dosage: 100 MUG, QWK
     Route: 058
     Dates: start: 20120912
  6. TORASEMID [Concomitant]
     Active Substance: TORSEMIDE
     Dosage: 5 MG, QD
  7. SIMVASTATIN. [Concomitant]
     Active Substance: SIMVASTATIN
     Dosage: 20 MG, UNK
  8. ATORVASTATIN [Concomitant]
     Active Substance: ATORVASTATIN
     Dosage: 20 MG, QD

REACTIONS (1)
  - Transient ischaemic attack [Recovered/Resolved]

NARRATIVE: CASE EVENT DATE: 20140324
